FAERS Safety Report 21732679 (Version 2)
Quarter: 2023Q4

REPORT INFORMATION
  Report Type: Report from Study
  Country: US (occurrence: US)
  Receive Date: 20221215
  Receipt Date: 20231110
  Transmission Date: 20240109
  Serious: Yes (Death, Hospitalization)
  Sender: FDA-Public Use
  Company Number: US-ABBVIE-4235991

PATIENT
  Sex: Male

DRUGS (14)
  1. VENCLEXTA [Suspect]
     Active Substance: VENETOCLAX
     Indication: Plasma cell myeloma
     Dosage: FORM STRENGTH: 100MG?TAKE 4 (400 MG) TABLETS DAYS 1-7 FOR CYCLE TREATMENT CALENDAR.
     Route: 048
  2. VENCLEXTA [Suspect]
     Active Substance: VENETOCLAX
     Indication: Plasma cell myeloma
     Dosage: FORM STRENGTH: 100MG?TAKE 8 (800 MG) DAILY PER TREATMENT CALENDAR
     Route: 048
  3. ULTRAM [Concomitant]
     Active Substance: TRAMADOL HYDROCHLORIDE
     Indication: Pain
     Dosage: TAKE 1 TABLET (50 MG) EVERY 6 HOURS AS NEEDED BY MOUTH FOR PAIN INDICATIONS:? MODERATE TO MODERAT...
     Route: 048
  4. ZYLOPRIM [Concomitant]
     Active Substance: ALLOPURINOL
     Indication: Blood uric acid increased
     Dosage: TAKE 1 TABLET (100 MG) DAILY BY MOUTH INDICATIONS DISORDER OF EXCESSIVE URIC ACID IN? THE BLOOD
     Route: 048
  5. ROXICODONE [Concomitant]
     Active Substance: OXYCODONE HYDROCHLORIDE
     Indication: Pain
     Dosage: IMMEDIATE RELEASE TABLET?TAKE 1 TABLET (5 MG) EVERY 6 HOURS AS NEEDED BY MOUTH FOR PAIN INDICATIO...
     Route: 048
  6. POMALYST [Concomitant]
     Active Substance: POMALIDOMIDE
     Indication: Plasma cell myeloma
     Dosage: TAKE ONE (4 MG) CAPSULE BY MOUTH DAILY FOR 21 DAYS THEN 7 DAYS OFF ON A 28 DAY CYCLE
     Route: 048
  7. MAGNESIUM OXIDE [Concomitant]
     Active Substance: MAGNESIUM OXIDE
     Indication: Product used for unknown indication
     Dosage: TAKE 1 TABLET BY MOUTH DAILY?240 MG
     Route: 048
  8. ECOTRIN [Concomitant]
     Active Substance: ASPIRIN
     Indication: Anticoagulant therapy
     Dosage: ENTERIC COATED TABLET?TAKE 1 TABLET (81 MG) DAILY BY MOUTH
     Route: 048
  9. LIPITOR [Concomitant]
     Active Substance: ATORVASTATIN CALCIUM
     Indication: Lipids increased
     Dosage: TAKE 10 MG DAILY AT 6PM BY MOUTH
     Route: 048
     Dates: start: 202006
  10. BENICAR [Concomitant]
     Active Substance: OLMESARTAN MEDOXOMIL
     Indication: Product used for unknown indication
     Dosage: TAKE 1 TABLET (5 MG) DAILY BY MOUTH
     Route: 048
  11. DECADRON [Concomitant]
     Active Substance: DEXAMETHASONE
     Indication: Product used for unknown indication
     Dosage: TAKE TEN 4MG TABS BY MOUTH (TOTAL DOSE 40MG) ONCE WEEKLY ON DAYS 1, 8, 15 AND 22; REFER TO TX CAL...
     Route: 048
  12. VALTREX [Concomitant]
     Active Substance: VALACYCLOVIR HYDROCHLORIDE
     Indication: Product used for unknown indication
     Route: 048
     Dates: start: 202012
  13. GLUCOPHAGE [Concomitant]
     Active Substance: METFORMIN HYDROCHLORIDE
     Indication: Type 2 diabetes mellitus
     Dosage: TAKE 500 MG 2 TIMES DAILY (WITH MEALS) BY MOUTH PATIENT TAKES ONCE A DAY EACH? EVENING
     Route: 048
     Dates: start: 202003
  14. POMALYST [Concomitant]
     Active Substance: POMALIDOMIDE
     Indication: Product used for unknown indication

REACTIONS (3)
  - Death [Fatal]
  - Off label use [Unknown]
  - Malignant melanoma [Unknown]
